FAERS Safety Report 4560890-9 (Version None)
Quarter: 2005Q1

REPORT INFORMATION
  Report Type: 
  Country: None (occurrence: None)
  Receive Date: 20050126
  Receipt Date: 20050114
  Transmission Date: 20050727
  Serious: Yes (Hospitalization)
  Sender: FDA-Public Use
  Company Number: FR-JNJFOC-20050101823

PATIENT
  Age: 60 Year
  Sex: Male

DRUGS (14)
  1. TOPALGIC [Suspect]
     Indication: DRUG USE FOR UNKNOWN INDICATION
     Route: 049
  2. CORTANCYL [Suspect]
     Indication: DRUG USE FOR UNKNOWN INDICATION
     Route: 049
  3. PREVISCAN [Interacting]
     Indication: DRUG USE FOR UNKNOWN INDICATION
     Route: 049
  4. PROZAC [Suspect]
     Indication: DRUG USE FOR UNKNOWN INDICATION
     Route: 049
  5. LASILIX [Concomitant]
     Route: 049
  6. EUPANTOL [Concomitant]
     Route: 049
  7. FONZYLANE [Concomitant]
     Route: 049
  8. DAFALGAN [Concomitant]
     Route: 049
  9. IMOVANE [Concomitant]
     Route: 049
  10. GELOX [Concomitant]
     Route: 049
  11. GELOX [Concomitant]
     Route: 049
  12. GELOX [Concomitant]
     Route: 049
  13. MUCOMYST [Concomitant]
     Route: 049
  14. KAYEXALATE [Concomitant]
     Route: 049

REACTIONS (6)
  - DRUG INTERACTION [None]
  - HAEMATEMESIS [None]
  - HAEMATOMA [None]
  - PERITONEAL HAEMORRHAGE [None]
  - PROTHROMBIN TIME PROLONGED [None]
  - SMALL INTESTINAL OBSTRUCTION [None]
